FAERS Safety Report 12964258 (Version 1)
Quarter: 2016Q4

REPORT INFORMATION
  Report Type: Spontaneous
  Country: IT (occurrence: IT)
  Receive Date: 20161122
  Receipt Date: 20161122
  Transmission Date: 20170207
  Serious: Yes (Other)
  Sender: FDA-Public Use
  Company Number: IT-TEVA-713411ISR

PATIENT
  Age: 68 Year
  Sex: Male
  Weight: 98 kg

DRUGS (5)
  1. IRINOTECAN [Suspect]
     Active Substance: IRINOTECAN
     Indication: ADENOCARCINOMA OF COLON
     Route: 042
     Dates: start: 20160622, end: 20161026
  2. FLUOROURACIL. [Concomitant]
     Active Substance: FLUOROURACIL
     Indication: ADENOCARCINOMA OF COLON
     Dosage: 800MG CYCLICAL
     Dates: start: 20160622, end: 20160622
  3. FLUOROURACIL. [Concomitant]
     Active Substance: FLUOROURACIL
     Dosage: 4800MG CYCLICAL
  4. ERBITUX [Concomitant]
     Active Substance: CETUXIMAB
     Indication: ADENOCARCINOMA OF COLON
     Dates: start: 20160622, end: 20161026
  5. LEVOFOLINIC ACID [Concomitant]
     Active Substance: LEVOLEUCOVORIN
     Indication: ADENOCARCINOMA OF COLON
     Dates: start: 20160622, end: 20161026

REACTIONS (1)
  - Infusion related reaction [Recovering/Resolving]

NARRATIVE: CASE EVENT DATE: 20160622
